FAERS Safety Report 6678975-X (Version None)
Quarter: 2010Q2

REPORT INFORMATION
  Report Type: 
  Country: None (occurrence: None)
  Receive Date: 20100413
  Receipt Date: 20100406
  Transmission Date: 20101027
  Serious: Yes (Hospitalization, Other)
  Sender: FDA-Public Use
  Company Number: US-BAYER-201018685NA

PATIENT
  Age: 19 Year
  Sex: Female

DRUGS (1)
  1. YAZ [Suspect]
     Indication: HEADACHE
     Route: 048

REACTIONS (4)
  - HAEMATOMA [None]
  - PAIN IN EXTREMITY [None]
  - PULMONARY THROMBOSIS [None]
  - THROMBOSIS [None]
